FAERS Safety Report 23342737 (Version 1)
Quarter: 2023Q4

REPORT INFORMATION
  Report Type: Spontaneous
  Country: GB (occurrence: GB)
  Receive Date: 20231227
  Receipt Date: 20231227
  Transmission Date: 20240110
  Serious: Yes (Other)
  Sender: FDA-Public Use
  Company Number: GB-MYLANLABS-2023M1120648

PATIENT
  Age: 48 Year
  Sex: Female
  Weight: 86 kg

DRUGS (3)
  1. CLOZARIL [Suspect]
     Active Substance: CLOZAPINE
     Indication: Schizophrenia
     Dosage: 125 MILLIGRAM, BID
     Route: 048
     Dates: start: 20230920
  2. BISOPROLOL [Concomitant]
     Active Substance: BISOPROLOL\BISOPROLOL FUMARATE
     Indication: Tachycardia
     Dosage: 2.5 MILLIGRAM, QD
     Route: 048
  3. VALPROATE SODIUM [Concomitant]
     Active Substance: VALPROATE SODIUM
     Indication: Affective disorder
     Dosage: 800 MILLIGRAM, BID
     Route: 048

REACTIONS (4)
  - Confusional state [Unknown]
  - Neutrophilia [Unknown]
  - Leukocytosis [Unknown]
  - Infection [Unknown]

NARRATIVE: CASE EVENT DATE: 20231107
